FAERS Safety Report 12117971 (Version 2)
Quarter: 2016Q2

REPORT INFORMATION
  Report Type: Report from Study
  Country: BE (occurrence: BE)
  Receive Date: 20160226
  Receipt Date: 20160426
  Transmission Date: 20160815
  Serious: Yes (Hospitalization, Other)
  Sender: FDA-Public Use
  Company Number: BE-ROCHE-1494094

PATIENT
  Age: 86 Year
  Sex: Female

DRUGS (8)
  1. DUOVENT [Concomitant]
     Active Substance: FENOTEROL HYDROBROMIDE
     Route: 065
     Dates: start: 2014
  2. DURATEARS (BELGIUM) [Concomitant]
     Route: 065
     Dates: start: 2014
  3. SERETIDE [Concomitant]
     Active Substance: FLUTICASONE PROPIONATE\SALMETEROL XINAFOATE
     Indication: ISCHAEMIC STROKE
  4. TRIBVIT [Concomitant]
     Route: 065
     Dates: start: 2014
  5. APROVEL [Concomitant]
     Active Substance: IRBESARTAN
     Route: 065
     Dates: start: 2014
  6. PULMICORT TURBUHALER [Concomitant]
     Active Substance: BUDESONIDE
     Route: 065
     Dates: start: 2014
  7. SERETIDE [Concomitant]
     Active Substance: FLUTICASONE PROPIONATE\SALMETEROL XINAFOATE
     Indication: ATRIAL FIBRILLATION
  8. RANIBIZUMAB [Suspect]
     Active Substance: RANIBIZUMAB
     Indication: NEOVASCULAR AGE-RELATED MACULAR DEGENERATION
     Dosage: DATE OF LAST DOSE PRIOR TO SERIOUS ADVERSE EVENT: 16/SEP/2014.
     Route: 050
     Dates: start: 20090630

REACTIONS (4)
  - Ischaemic stroke [Recovering/Resolving]
  - Atrial fibrillation [Unknown]
  - Feeling of despair [Unknown]
  - Hypercholesterolaemia [Unknown]

NARRATIVE: CASE EVENT DATE: 20141015
